FAERS Safety Report 9508441 (Version 1)
Quarter: 2013Q3

REPORT INFORMATION
  Report Type: Spontaneous
  Country: US (occurrence: US)
  Receive Date: 20130909
  Receipt Date: 20130909
  Transmission Date: 20140515
  Serious: Yes (Other)
  Sender: FDA-Public Use
  Company Number: US-BAYER-2013-106586

PATIENT
  Age: 55 Year
  Sex: Female
  Weight: 43.08 kg

DRUGS (2)
  1. ALEVE CAPLET [Suspect]
     Dosage: 1 DF, QD
     Route: 048
     Dates: start: 201301
  2. ALEVE CAPLET [Suspect]
     Dosage: 2 DF, QD

REACTIONS (13)
  - Throat tightness [None]
  - Swelling [Not Recovered/Not Resolved]
  - Weight increased [None]
  - Skin discolouration [None]
  - Abdominal pain [None]
  - Rash [None]
  - Incorrect drug administration duration [None]
  - Joint swelling [Not Recovered/Not Resolved]
  - Musculoskeletal stiffness [Not Recovered/Not Resolved]
  - Nausea [None]
  - Dyspepsia [None]
  - Dizziness [None]
  - Oedema peripheral [Not Recovered/Not Resolved]
